FAERS Safety Report 5090813-8 (Version None)
Quarter: 2006Q3

REPORT INFORMATION
  Report Type: 
  Country: None (occurrence: None)
  Receive Date: 20060823
  Receipt Date: 20060814
  Transmission Date: 20061208
  Serious: Yes (Hospitalization)
  Sender: FDA-Public Use
  Company Number: 2006RR-03334

PATIENT
  Age: 60 Year
  Sex: Female

DRUGS (3)
  1. AMOXICILLIN + CLAVULANATE POTASSIUM [Suspect]
     Dosage: 375 MG, ORAL
     Route: 048
     Dates: start: 20060506, end: 20060513
  2. BENDROFLUAZIDE [Concomitant]
  3. LOSARTAN POTASSIUM [Concomitant]

REACTIONS (1)
  - JAUNDICE [None]
